FAERS Safety Report 5707140-5 (Version None)
Quarter: 2008Q2

REPORT INFORMATION
  Report Type: 
  Country: None (occurrence: None)
  Receive Date: 20080416
  Receipt Date: 20080408
  Transmission Date: 20081010
  Serious: Yes (Hospitalization)
  Sender: FDA-Public Use
  Company Number: NL-ROCHE-557286

PATIENT
  Sex: Female

DRUGS (10)
  1. CAPECITABINE [Suspect]
     Indication: COLORECTAL CANCER
     Route: 048
     Dates: start: 20070723
  2. BEVACIZUMAB [Suspect]
     Indication: COLORECTAL CANCER
     Route: 042
     Dates: start: 20070123
  3. OXALIPLATIN [Suspect]
     Indication: COLORECTAL CANCER
     Route: 042
     Dates: start: 20070723
  4. FLAGYL [Concomitant]
     Route: 042
  5. FRAGMIN [Concomitant]
     Dosage: IE
     Route: 042
  6. HALDOL [Concomitant]
  7. MORPHINE [Concomitant]
     Route: 058
  8. NORVASC [Concomitant]
  9. PRIMPERAN INJ [Concomitant]
  10. TOBRAMYCIN [Concomitant]
     Route: 042

REACTIONS (1)
  - TUMOUR PERFORATION [None]
